FAERS Safety Report 23679440 (Version 1)
Quarter: 2024Q1

REPORT INFORMATION
  Report Type: Spontaneous
  Country: BR (occurrence: BR)
  Receive Date: 20240327
  Receipt Date: 20240327
  Transmission Date: 20240410
  Serious: Yes (Other)
  Sender: FDA-Public Use
  Company Number: BR-FreseniusKabi-FK202405038

PATIENT
  Age: 74 Year
  Sex: Female

DRUGS (6)
  1. PROPOFOL [Suspect]
     Active Substance: PROPOFOL
     Indication: Induction of anaesthesia
     Dosage: EMULSION FOR INFUSION/INJECTION?FREQUENCY: NOT INFORMED?ROUTE OF ADMIN: INTRAVENOUS
     Dates: start: 20240308, end: 20240308
  2. KETAMINE 50 mg / ml [Concomitant]
  3. REMIFENTANIL [Concomitant]
     Active Substance: REMIFENTANIL
  4. SUFENTANIL CITRATE [Concomitant]
     Active Substance: SUFENTANIL CITRATE
  5. DIPRIVAN [Concomitant]
     Active Substance: ISOPROPYL ALCOHOL\PROPOFOL
  6. MORPHINE SULFATE [Concomitant]
     Active Substance: MORPHINE SULFATE

REACTIONS (1)
  - Depressed level of consciousness [Unknown]

NARRATIVE: CASE EVENT DATE: 20240308
